FAERS Safety Report 14757867 (Version 1)
Quarter: 2018Q2

REPORT INFORMATION
  Report Type: Spontaneous
  Country: US (occurrence: US)
  Receive Date: 20180413
  Receipt Date: 20180413
  Transmission Date: 20180711
  Serious: No
  Sender: FDA-Public Use
  Company Number: US-SOMERSET-2017-US-000098

PATIENT
  Age: 62 Year
  Sex: Male

DRUGS (1)
  1. TOBRAMYCIN OPHTHALMIC SOLUTION USP, 0.3% [Suspect]
     Active Substance: TOBRAMYCIN
     Route: 047
     Dates: start: 20171227, end: 20171228

REACTIONS (3)
  - Vision blurred [None]
  - Product use complaint [None]
  - Infection [None]

NARRATIVE: CASE EVENT DATE: 20171228
